FAERS Safety Report 5795004-0 (Version None)
Quarter: 2008Q2

REPORT INFORMATION
  Report Type: 
  Country: None (occurrence: None)
  Receive Date: 20080630
  Receipt Date: 20080506
  Transmission Date: 20081010
  Serious: No
  Sender: FDA-Public Use
  Company Number: US-BRISTOL-MYERS SQUIBB COMPANY-14064174

PATIENT
  Age: 49 Year
  Sex: Female

DRUGS (4)
  1. ORENCIA [Suspect]
     Indication: RHEUMATOID ARTHRITIS
     Route: 042
     Dates: start: 20071231, end: 20071231
  2. AZULFIDINE EN-TABS [Suspect]
     Dates: start: 20070701
  3. IMURAN [Suspect]
     Dates: start: 20070609
  4. MEDROL [Concomitant]

REACTIONS (9)
  - ASTHENIA [None]
  - EYE SWELLING [None]
  - INSOMNIA [None]
  - LIGAMENT LAXITY [None]
  - LIP SWELLING [None]
  - MUSCLE RIGIDITY [None]
  - NAUSEA [None]
  - SWELLING FACE [None]
  - SWOLLEN TONGUE [None]
